FAERS Safety Report 11009862 (Version 1)
Quarter: 2015Q2

REPORT INFORMATION
  Report Type: Spontaneous
  Country: TR (occurrence: TR)
  Receive Date: 20150410
  Receipt Date: 20150410
  Transmission Date: 20150821
  Serious: Yes (Life-Threatening, Hospitalization, Other)
  Sender: FDA-Public Use
  Company Number: TR-ELI_LILLY_AND_COMPANY-TR201504002319

PATIENT
  Age: 15 Year
  Sex: Male

DRUGS (3)
  1. QUETIAPINE [Suspect]
     Active Substance: QUETIAPINE
     Indication: BEHAVIOURAL THERAPY
     Dosage: 600 MG, QD
     Route: 065
  2. OLANZAPINE. [Suspect]
     Active Substance: OLANZAPINE
     Indication: BEHAVIOURAL THERAPY
     Dosage: 10 MG, QD
     Route: 065
  3. RISPERIDONE. [Suspect]
     Active Substance: RISPERIDONE
     Indication: BEHAVIOURAL THERAPY
     Dosage: 1 MG, QD
     Route: 065

REACTIONS (6)
  - Oculogyric crisis [Recovering/Resolving]
  - Nutritional condition abnormal [Unknown]
  - Pericardial effusion [Recovering/Resolving]
  - Hypotension [Unknown]
  - Neuroleptic malignant syndrome [Recovering/Resolving]
  - Self injurious behaviour [Recovered/Resolved]
